FAERS Safety Report 4827141-9 (Version None)
Quarter: 2005Q4

REPORT INFORMATION
  Report Type: 
  Country: None (occurrence: None)
  Receive Date: 20051014
  Receipt Date: 20050623
  Transmission Date: 20060501
  Serious: No
  Sender: FDA-Public Use
  Company Number: 2005SP001567

PATIENT
  Age: 68 Year
  Sex: Male
  Weight: 83.9154 kg

DRUGS (8)
  1. LUNESTA [Suspect]
     Indication: INSOMNIA
     Dosage: 2 MG;HS;ORAL   3 MG;HS;ORAL
     Route: 048
     Dates: start: 20050501, end: 20050101
  2. LUNESTA [Suspect]
     Indication: INSOMNIA
     Dosage: 2 MG;HS;ORAL   3 MG;HS;ORAL
     Route: 048
     Dates: start: 20050101
  3. ATORVASTATIN CALCIUM [Concomitant]
  4. PREVACID [Concomitant]
  5. ACCUPRIL [Concomitant]
  6. TOPROL-XL [Concomitant]
  7. TAMSULOSIN HYDROCHLORIDE [Concomitant]
  8. ALCOHOL [Concomitant]

REACTIONS (1)
  - INSOMNIA [None]
